FAERS Safety Report 4699790-2 (Version None)
Quarter: 2005Q2

REPORT INFORMATION
  Report Type: 
  Country: None (occurrence: None)
  Receive Date: 20050623
  Receipt Date: 20050610
  Transmission Date: 20051028
  Serious: Yes (Hospitalization, Other)
  Sender: FDA-Public Use
  Company Number: 2005087253

PATIENT
  Age: 64 Year
  Sex: Female
  Weight: 72.5755 kg

DRUGS (7)
  1. DILANTIN [Suspect]
     Indication: GRAND MAL CONVULSION
     Dosage: 500 MG (2 IN 1 D), ORAL
     Route: 048
     Dates: start: 19920101
  2. EFFEXOR [Concomitant]
  3. ADDRELL (AMFETAMNE ASPARTATE, AMFETAMINE SULFATE, DEXAMFETAMINE SACCHA [Concomitant]
  4. XANAX [Concomitant]
  5. ALLEGRA (FEXOFENDADINE HYDROCHLORIDE) [Concomitant]
  6. FLONASE [Concomitant]
  7. KEPPRA [Concomitant]

REACTIONS (13)
  - ANTICONVULSANT DRUG LEVEL INCREASED [None]
  - BALANCE DISORDER [None]
  - CONFUSIONAL STATE [None]
  - COORDINATION ABNORMAL [None]
  - DRUG INEFFECTIVE [None]
  - DRUG INTERACTION [None]
  - DYSPNOEA [None]
  - ECONOMIC PROBLEM [None]
  - FEELING ABNORMAL [None]
  - JAUNDICE [None]
  - MEMORY IMPAIRMENT [None]
  - RASH [None]
  - VITAMIN B12 DEFICIENCY [None]
